FAERS Safety Report 12717950 (Version 2)
Quarter: 2017Q2

REPORT INFORMATION
  Report Type: Spontaneous
  Country: US (occurrence: US)
  Receive Date: 20160906
  Receipt Date: 20170504
  Transmission Date: 20170830
  Serious: No
  Sender: FDA-Public Use
  Company Number: GXBR2016US002669

PATIENT
  Sex: Female

DRUGS (1)
  1. ATENOLOL TABLETS USP [Suspect]
     Active Substance: ATENOLOL
     Indication: BLOOD PRESSURE MEASUREMENT
     Dosage: 25 MG, UNK
     Route: 048

REACTIONS (2)
  - Blood pressure inadequately controlled [Unknown]
  - Feeling abnormal [Unknown]
